FAERS Safety Report 19403098 (Version 6)
Quarter: 2022Q4

REPORT INFORMATION
  Report Type: Other
  Country: DE (occurrence: None)
  Receive Date: 20210611
  Receipt Date: 20221116
  Transmission Date: 20230113
  Serious: Yes (Hospitalization)
  Sender: FDA-Public Use
  Company Number: DE-ROCHE-2702754

PATIENT
  Age: 72 Year
  Sex: Female

DRUGS (9)
  1. OCREVUS [Suspect]
     Active Substance: OCRELIZUMAB
     Indication: Relapsing-remitting multiple sclerosis
     Route: 042
     Dates: start: 20201022
  2. OCREVUS [Suspect]
     Active Substance: OCRELIZUMAB
     Route: 042
     Dates: start: 20201105
  3. OCREVUS [Suspect]
     Active Substance: OCRELIZUMAB
     Route: 042
     Dates: end: 20220926
  4. MODERNA COVID-19 VACCINE [Suspect]
     Active Substance: ELASOMERAN
     Indication: Product used for unknown indication
     Route: 065
  5. MODERNA COVID-19 VACCINE [Suspect]
     Active Substance: ELASOMERAN
     Route: 065
     Dates: start: 20210816
  6. MODERNA COVID-19 VACCINE [Suspect]
     Active Substance: ELASOMERAN
     Route: 065
     Dates: start: 20211227
  7. CORTISONE [Concomitant]
     Active Substance: CORTISONE
  8. ALVESCO [Concomitant]
     Active Substance: CICLESONIDE
     Dosage: METERED DOSE AEROSOL DAILY
  9. ALBUTEROL [Concomitant]
     Active Substance: ALBUTEROL
     Route: 055

REACTIONS (21)
  - Blood pressure decreased [Recovered/Resolved]
  - Fatigue [Recovered/Resolved]
  - Gait disturbance [Recovering/Resolving]
  - Cognitive disorder [Not Recovered/Not Resolved]
  - Muscle spasms [Recovering/Resolving]
  - Oral herpes [Recovered/Resolved]
  - Affect lability [Recovered/Resolved]
  - SARS-CoV-2 antibody test negative [Not Recovered/Not Resolved]
  - Lenticular opacities [Not Recovered/Not Resolved]
  - Paraesthesia [Not Recovered/Not Resolved]
  - Peroneal nerve palsy [Recovered/Resolved]
  - Fall [Unknown]
  - Periorbital haematoma [Not Recovered/Not Resolved]
  - Limb injury [Not Recovered/Not Resolved]
  - Head injury [Not Recovered/Not Resolved]
  - Initial insomnia [Not Recovered/Not Resolved]
  - Hypoaesthesia [Not Recovered/Not Resolved]
  - Paraesthesia [Not Recovered/Not Resolved]
  - Campylobacter gastroenteritis [Recovered/Resolved]
  - Poor venous access [Unknown]
  - Fatigue [Not Recovered/Not Resolved]

NARRATIVE: CASE EVENT DATE: 20201022
